FAERS Safety Report 6531584-5 (Version None)
Quarter: 2010Q1

REPORT INFORMATION
  Report Type: 
  Country: None (occurrence: None)
  Receive Date: 20100108
  Receipt Date: 20091230
  Transmission Date: 20100710
  Serious: Yes (Other)
  Sender: FDA-Public Use
  Company Number: US-SANOFI-AVENTIS-2010SA000039

PATIENT
  Age: 59 Year
  Sex: Male
  Weight: 122.73 kg

DRUGS (14)
  1. LOVENOX [Suspect]
     Indication: THROMBOSIS PROPHYLAXIS
     Dates: start: 20080801
  2. ASPIRIN [Concomitant]
  3. FOLIC ACID [Concomitant]
  4. LIPITOR [Concomitant]
  5. NADOLOL [Concomitant]
  6. DIOVAN [Concomitant]
  7. ALDACTONE [Concomitant]
  8. ALLOPURINOL [Concomitant]
  9. NEXIUM /UNK/ [Concomitant]
  10. LAMOTRIGINE [Concomitant]
  11. RISPERDAL [Concomitant]
  12. PROZAC [Concomitant]
  13. TEGRETOL [Concomitant]
  14. XANAX [Concomitant]

REACTIONS (4)
  - AMMONIA INCREASED [None]
  - HUNGER [None]
  - LIVER DISORDER [None]
  - WEIGHT INCREASED [None]
